FAERS Safety Report 17439821 (Version 1)
Quarter: 2020Q1

REPORT INFORMATION
  Report Type: Report from Study
  Country: US (occurrence: US)
  Receive Date: 20200220
  Receipt Date: 20200220
  Transmission Date: 20200409
  Serious: Yes (Other)
  Sender: FDA-Public Use
  Company Number: US-BAUSCH-BL-2020-005194

PATIENT
  Age: 75 Year
  Sex: Female
  Weight: 102.6 kg

DRUGS (1)
  1. XIFAXAN [Suspect]
     Active Substance: RIFAXIMIN
     Indication: LIVER DISORDER
     Dosage: STARTED SEVERAL YEARS AGO
     Route: 048
     Dates: end: 2020

REACTIONS (4)
  - Therapy cessation [Unknown]
  - Fluid retention [Unknown]
  - Insurance issue [Unknown]
  - Aortic thrombosis [Not Recovered/Not Resolved]

NARRATIVE: CASE EVENT DATE: 201912
